FAERS Safety Report 8975935 (Version 3)
Quarter: 2014Q2

REPORT INFORMATION
  Report Type: Spontaneous
  Country: JP (occurrence: JP)
  Receive Date: 20121219
  Receipt Date: 20140407
  Transmission Date: 20141212
  Serious: Yes (Hospitalization, Other)
  Sender: FDA-Public Use
  Company Number: PHHY2012JP115244

PATIENT
  Age: 84 Year
  Sex: Female
  Weight: 56 kg

DRUGS (13)
  1. ZOMETA [Suspect]
     Indication: METASTASES TO BONE
     Dosage: 4 MG, (PER ADMINISTRATION)
     Route: 041
     Dates: start: 20121122
  2. IRESSA [Suspect]
     Indication: LUNG NEOPLASM MALIGNANT
     Dosage: 250 MG
     Route: 048
     Dates: start: 20121027, end: 20121127
  3. IRESSA [Suspect]
     Dosage: 250 MG, DAILY
     Dates: start: 20121207
  4. TERNELIN [Concomitant]
     Indication: OSTEOARTHRITIS
     Dosage: 2 MG
     Route: 048
  5. THYRADIN [Concomitant]
     Indication: HYPOTHYROIDISM
     Dosage: 50 MG
     Route: 048
  6. AMLODIPINE [Concomitant]
     Indication: HYPERTENSION
     Dosage: 5 MG
     Route: 048
  7. CELECOX [Concomitant]
     Indication: OSTEOARTHRITIS
     Dosage: 200 MG
     Route: 048
  8. LYRICA [Concomitant]
     Indication: OSTEOARTHRITIS
     Dosage: 25 MG
     Route: 048
  9. BAYASPIRIN [Concomitant]
     Dosage: 100 MG
     Route: 048
     Dates: start: 20121118
  10. OXYCONTIN [Concomitant]
     Indication: METASTASES TO BONE
     Dosage: 10 MG
     Route: 048
     Dates: start: 20121126, end: 20121205
  11. OXYCONTIN [Concomitant]
     Indication: PAIN
  12. NOVAMIN [Concomitant]
     Dosage: 15 MG
     Dates: start: 20121126, end: 20121205
  13. SELBEX [Concomitant]
     Dosage: 150 MG
     Route: 048
     Dates: start: 20121027

REACTIONS (8)
  - Pleural effusion [Recovering/Resolving]
  - Oxygen saturation decreased [Unknown]
  - Lung infiltration [Unknown]
  - Pain [Unknown]
  - Chest pain [Unknown]
  - Back pain [Unknown]
  - Metastases to bone [Unknown]
  - Malignant pleural effusion [Recovering/Resolving]
